FAERS Safety Report 6228055-2 (Version None)
Quarter: 2009Q2

REPORT INFORMATION
  Report Type: 
  Country: None (occurrence: None)
  Receive Date: 20090610
  Receipt Date: 20090610
  Transmission Date: 20091009
  Serious: No
  Sender: FDA-Public Use
  Company Number: None

PATIENT
  Sex: Female
  Weight: 78.0187 kg

DRUGS (2)
  1. LOVAZA [Suspect]
     Indication: PRURITUS
     Dosage: ONE TABLET TWICE A DAY
     Dates: start: 20090606, end: 20090608
  2. LOVAZA [Suspect]
     Indication: URTICARIA
     Dosage: ONE TABLET TWICE A DAY
     Dates: start: 20090606, end: 20090608

REACTIONS (3)
  - ERYTHEMA [None]
  - RASH PRURITIC [None]
  - URTICARIA [None]
